FAERS Safety Report 4812004-5 (Version None)
Quarter: 2005Q4

REPORT INFORMATION
  Report Type: 
  Country: None (occurrence: None)
  Receive Date: 20051027
  Receipt Date: 20051027
  Transmission Date: 20060501
  Serious: Yes (Hospitalization)
  Sender: FDA-Public Use
  Company Number: None

PATIENT
  Age: 59 Year
  Sex: Female

DRUGS (2)
  1. TAXOTERE [Suspect]
     Indication: BREAST CANCER METASTATIC
     Dosage: 75MG/M2  Q 3 WK   IV
     Route: 042
     Dates: start: 20051011
  2. BEVACIZUMAB   15 MG/KG  - GENENTECH [Suspect]
     Indication: BREAST CANCER METASTATIC
     Dosage: 15MG/KG Q 3 WK   IV
     Route: 042
     Dates: start: 20051011

REACTIONS (1)
  - FEBRILE NEUTROPENIA [None]
